FAERS Safety Report 6787444-8 (Version None)
Quarter: 2010Q2

REPORT INFORMATION
  Report Type: 
  Country: None (occurrence: None)
  Receive Date: 20100623
  Receipt Date: 20070514
  Transmission Date: 20101027
  Serious: Yes (Other)
  Sender: FDA-Public Use
  Company Number: US-PFIZER INC-2007038950

PATIENT
  Sex: Male

DRUGS (1)
  1. GEODON [Suspect]
     Route: 048
     Dates: start: 20040501, end: 20040701

REACTIONS (5)
  - BURNING SENSATION [None]
  - CONSTIPATION [None]
  - HEPATOTOXICITY [None]
  - LIMB DISCOMFORT [None]
  - PAIN [None]
